FAERS Safety Report 24605081 (Version 1)
Quarter: 2024Q4

REPORT INFORMATION
  Report Type: Spontaneous
  Country: US (occurrence: US)
  Receive Date: 20241111
  Receipt Date: 20241111
  Transmission Date: 20250114
  Serious: No
  Sender: PARATEK PHARMACEUTICALS
  Company Number: US-PARATEK PHARMACEUTICALS, INC.-2024PTK00821

PATIENT
  Sex: Female

DRUGS (2)
  1. OMADACYCLINE [Suspect]
     Active Substance: OMADACYCLINE
     Indication: Atypical mycobacterial infection
     Dosage: UNK
     Dates: start: 202405
  2. OMADACYCLINE [Suspect]
     Active Substance: OMADACYCLINE
     Indication: Pneumonia bacterial

REACTIONS (3)
  - Tooth discolouration [Unknown]
  - Incorrect product administration duration [Unknown]
  - Off label use [Unknown]

NARRATIVE: CASE EVENT DATE: 20240101
